FAERS Safety Report 11877791 (Version 1)
Quarter: 2015Q4

REPORT INFORMATION
  Report Type: Spontaneous
  Country: US (occurrence: US)
  Receive Date: 20151230
  Receipt Date: 20151230
  Transmission Date: 20160305
  Serious: Yes (Hospitalization)
  Sender: FDA-Public Use
  Company Number: US-BEH-2015057159

PATIENT
  Sex: Female
  Weight: 69 kg

DRUGS (28)
  1. DIPHENHYDRAMINE. [Concomitant]
     Active Substance: DIPHENHYDRAMINE
  2. LIDOCAINE/PRILOCAINE [Concomitant]
  3. VITAMIN E [Concomitant]
     Active Substance: .ALPHA.-TOCOPHEROL
  4. PROMETHAZINE [Concomitant]
     Active Substance: PROMETHAZINE\PROMETHAZINE HYDROCHLORIDE
  5. ONDANSETRON HYDROCHLORIDE. [Concomitant]
     Active Substance: ONDANSETRON HYDROCHLORIDE
  6. SODIUM CHLORIDE. [Concomitant]
     Active Substance: SODIUM CHLORIDE
  7. IPRATROPIUM BROMIDE. [Concomitant]
     Active Substance: IPRATROPIUM BROMIDE
  8. OXYGEN. [Concomitant]
     Active Substance: OXYGEN
  9. ALVESCO [Concomitant]
     Active Substance: CICLESONIDE
  10. IMITREX [Concomitant]
     Active Substance: SUMATRIPTAN\SUMATRIPTAN SUCCINATE
  11. IRON [Concomitant]
     Active Substance: IRON
  12. AYR SALINE [Concomitant]
  13. VENTOLIN [Concomitant]
     Active Substance: ALBUTEROL SULFATE
  14. PAROXETINE HYDROCHLORIDE. [Concomitant]
     Active Substance: PAROXETINE HYDROCHLORIDE
  15. ISOMETHEPTENE DICHLORAL ACETAMIN [Concomitant]
  16. AUGMENTIN [Concomitant]
     Active Substance: AMOXICILLIN\CLAVULANATE POTASSIUM
  17. BUDESONIDE. [Concomitant]
     Active Substance: BUDESONIDE
  18. ZEMAIRA [Suspect]
     Active Substance: .ALPHA.1-PROTEINASE INHIBITOR HUMAN
     Indication: ALPHA-1 ANTI-TRYPSIN DEFICIENCY
     Dosage: 1048 MG/VL
     Route: 042
     Dates: start: 20100506
  19. LORAZEPAM. [Concomitant]
     Active Substance: LORAZEPAM
  20. MULTIVITAMINS [Concomitant]
     Active Substance: VITAMINS
  21. LEVOTHYROXINE SODIUM. [Concomitant]
     Active Substance: LEVOTHYROXINE SODIUM
  22. TOPIRAMATE. [Concomitant]
     Active Substance: TOPIRAMATE
  23. EXCEDRIN [Concomitant]
     Active Substance: ACETAMINOPHEN\ASPIRIN\CAFFEINE
     Indication: TENSION HEADACHE
  24. PREDNISONE. [Concomitant]
     Active Substance: PREDNISONE
  25. EPIPEN [Concomitant]
     Active Substance: EPINEPHRINE
  26. OMEPRAZOLE. [Concomitant]
     Active Substance: OMEPRAZOLE
  27. AMITRIPTYLINE [Concomitant]
     Active Substance: AMITRIPTYLINE
  28. PHENERGAN [Concomitant]
     Active Substance: PROMETHAZINE HYDROCHLORIDE

REACTIONS (1)
  - Carbon dioxide [Unknown]
